FAERS Safety Report 19954955 (Version 1)
Quarter: 2021Q4

REPORT INFORMATION
  Report Type: Spontaneous
  Country: IT (occurrence: IT)
  Receive Date: 20211014
  Receipt Date: 20211014
  Transmission Date: 20220303
  Serious: Yes (Hospitalization, Other)
  Sender: FDA-Public Use
  Company Number: IT-SLATE RUN PHARMACEUTICALS-21IT000714

PATIENT

DRUGS (11)
  1. GANCICLOVIR [Suspect]
     Active Substance: GANCICLOVIR
     Indication: Viral load increased
     Dosage: 165 MILLIGRAM, BID
     Route: 042
  2. GANCICLOVIR [Suspect]
     Active Substance: GANCICLOVIR
     Dosage: 230 MILLIGRAM, BID
     Route: 042
  3. GANCICLOVIR [Suspect]
     Active Substance: GANCICLOVIR
     Dosage: 200 MILLIGRAM, BID
     Route: 042
  4. GANCICLOVIR [Suspect]
     Active Substance: GANCICLOVIR
     Dosage: 250 MILLIGRAM, BID
     Route: 042
  5. FOSCARNET [Suspect]
     Active Substance: FOSCARNET
     Indication: Drug resistance
     Dosage: 90 MILLIGRAM PER KILOGRAM, TID
  6. IMMUNE GLOBULIN NOS [Concomitant]
     Active Substance: IMMUNE GLOBULIN NOS
     Indication: Hypothyroidism
  7. UNSPECIFIED INGREDIENT [Concomitant]
     Active Substance: UNSPECIFIED INGREDIENT
     Indication: Immunosuppressant drug therapy
     Dosage: UNK
  8. UNSPECIFIED INGREDIENT [Concomitant]
     Active Substance: UNSPECIFIED INGREDIENT
     Dosage: 5 MILLIGRAM, QD
  9. TACROLIMUS [Concomitant]
     Active Substance: TACROLIMUS
     Indication: Immunosuppressant drug therapy
     Dosage: REDUCED
  10. TACROLIMUS [Concomitant]
     Active Substance: TACROLIMUS
     Dosage: 0.5 MILLIGRAM, QD
  11. VALGANCICLOVIR [Concomitant]
     Active Substance: VALGANCICLOVIR
     Indication: Viral load increased
     Dosage: 900 MILLIGRAM, BID

REACTIONS (15)
  - Myelosuppression [Unknown]
  - Gastrointestinal haemorrhage [Unknown]
  - Cerebral ischaemia [Unknown]
  - Viral load increased [Not Recovered/Not Resolved]
  - Electrolyte imbalance [Unknown]
  - Therapeutic product effect incomplete [Unknown]
  - Neurological symptom [Unknown]
  - Respiratory distress [Unknown]
  - Pneumonia cytomegaloviral [Unknown]
  - Staphylococcal sepsis [Unknown]
  - Nephropathy toxic [Unknown]
  - Neutropenia [Unknown]
  - Anaemia [Unknown]
  - Thrombocytopenia [Unknown]
  - Drug resistance [Unknown]
